FAERS Safety Report 13654851 (Version 1)
Quarter: 2017Q2

REPORT INFORMATION
  Report Type: Report from Study
  Country: US (occurrence: US)
  Receive Date: 20170615
  Receipt Date: 20170615
  Transmission Date: 20170830
  Serious: Yes (Hospitalization)
  Sender: FDA-Public Use
  Company Number: US-ROCHE-1946171

PATIENT
  Age: 67 Year
  Sex: Female
  Weight: 62.3 kg

DRUGS (2)
  1. BEVACIZUMAB [Suspect]
     Active Substance: BEVACIZUMAB
     Indication: OVARIAN CANCER
     Route: 042
     Dates: start: 20121002
  2. RAD001 [Suspect]
     Active Substance: EVEROLIMUS
     Indication: OVARIAN CANCER
     Dosage: TAKEN WITH A BIG GLASS OF WATER ON AN EMPTY STOMACH OR AFTER A LOW-FAT MEAL.
     Route: 048
     Dates: start: 20121002, end: 20121015

REACTIONS (1)
  - Catheter site erosion [Unknown]

NARRATIVE: CASE EVENT DATE: 20121015
